FAERS Safety Report 7051317-6 (Version None)
Quarter: 2010Q4

REPORT INFORMATION
  Report Type: 
  Country: None (occurrence: None)
  Receive Date: 20101019
  Receipt Date: 20100104
  Transmission Date: 20110411
  Serious: No
  Sender: FDA-Public Use
  Company Number: US-ASTRAZENECA-2010SE01070

PATIENT
  Age: 79 Year
  Sex: Female

DRUGS (1)
  1. MERREM I.V. [Suspect]
     Route: 042

REACTIONS (2)
  - MUSCLE RIGIDITY [None]
  - TREMOR [None]
